FAERS Safety Report 18899276 (Version 1)
Quarter: 2021Q1

REPORT INFORMATION
  Report Type: Spontaneous
  Country: FR (occurrence: FR)
  Receive Date: 20210216
  Receipt Date: 20210216
  Transmission Date: 20210420
  Serious: Yes (Hospitalization)
  Sender: FDA-Public Use
  Company Number: FR-MYLANLABS-2021M1009306

PATIENT
  Age: 79 Year
  Sex: Female

DRUGS (10)
  1. MICROPAKINE [Suspect]
     Active Substance: VALPROATE SODIUM
     Indication: PRODUCT USED FOR UNKNOWN INDICATION
     Dosage: 100 MG PUIS 250 MG PUIS 500 MG
     Route: 048
     Dates: start: 20181004
  2. PRIMPERAN [Suspect]
     Active Substance: METOCLOPRAMIDE HYDROCHLORIDE
     Indication: PRODUCT USED FOR UNKNOWN INDICATION
     Dosage: 10 MG/2 ML
     Route: 048
     Dates: start: 20180611
  3. X PREP                             /00142208/ [Concomitant]
     Active Substance: SENNA LEAF
     Dosage: UNK
  4. DUROGESIC [Concomitant]
     Active Substance: FENTANYL
     Dosage: UNK
  5. TIAPRIDAL [Suspect]
     Active Substance: TIAPRIDE HYDROCHLORIDE
     Indication: BEHAVIOUR DISORDER
     Dosage: 90 GTT DROPS, QD
     Route: 048
     Dates: start: 2018, end: 20181109
  6. IMPORTAL [Concomitant]
     Active Substance: LACTITOL
     Dosage: UNK
  7. PROSTIGMINE                        /00045903/ [Concomitant]
     Active Substance: NEOSTIGMINE METHYLSULFATE
     Dosage: UNK
  8. MESTINON [Concomitant]
     Active Substance: PYRIDOSTIGMINE BROMIDE
     Dosage: UNK
  9. MIDAZOLAM. [Suspect]
     Active Substance: MIDAZOLAM
     Indication: PRODUCT USED FOR UNKNOWN INDICATION
     Dosage: 1 AMPOULE DE 2.5 ML SI BESOIN
     Dates: start: 20180528
  10. TEMESTA                            /00273201/ [Suspect]
     Active Substance: LORAZEPAM
     Indication: PRODUCT USED FOR UNKNOWN INDICATION
     Dosage: 1.5 CP LE MATIN, 0.5 CP LE MIDI ET 1.5 CP LE SOIR
     Route: 048
     Dates: start: 20180813, end: 20181119

REACTIONS (2)
  - Leukopenia [Not Recovered/Not Resolved]
  - Thrombocytopenia [Not Recovered/Not Resolved]

NARRATIVE: CASE EVENT DATE: 20181106
